FAERS Safety Report 9772344 (Version 3)
Quarter: 2014Q2

REPORT INFORMATION
  Report Type: Report from Study
  Country: DE (occurrence: DE)
  Receive Date: 20131219
  Receipt Date: 20140527
  Transmission Date: 20141212
  Serious: Yes (Hospitalization)
  Sender: FDA-Public Use
  Company Number: DE-ROCHE-1022204

PATIENT
  Age: 18 Year
  Sex: Male
  Weight: 58.7 kg

DRUGS (21)
  1. MYCOPHENOLATE MOFETIL [Suspect]
     Indication: RENAL TRANSPLANT
     Route: 048
     Dates: start: 20071114
  2. VALGANCICLOVIR [Suspect]
     Indication: RENAL TRANSPLANT
     Dosage: DATE OF MOST RECENT DOSE PRIOR TO SAE: 01/JAN/2008
     Route: 048
     Dates: start: 20071115
  3. RITUXIMAB [Suspect]
     Indication: PRODUCT USED FOR UNKNOWN INDICATION
     Route: 065
     Dates: start: 20051107
  4. TACROLIMUS [Suspect]
     Indication: RENAL TRANSPLANT
     Dosage: DATE OF MOST RECENT DOSE PRIOR TO SAE: 01/JAN/2008
     Route: 048
     Dates: start: 20071114
  5. TACROLIMUS [Suspect]
     Route: 065
     Dates: start: 20081021, end: 20081107
  6. METHYLPREDNISOLONE [Suspect]
     Indication: RENAL TRANSPLANT
     Dosage: DATE OF MOST RECENT DOSE PRIOR TO SAE: 01/JAN/2008
     Route: 048
     Dates: start: 20071114
  7. URBASON [Suspect]
     Indication: PRODUCT USED FOR UNKNOWN INDICATION
     Route: 065
  8. TENORMIN [Concomitant]
     Route: 048
     Dates: start: 20071114
  9. TENORMIN [Concomitant]
     Route: 048
     Dates: start: 20080908
  10. TENORMIN [Concomitant]
     Route: 048
     Dates: start: 20071203
  11. MAGNESIUM CITRATE [Concomitant]
     Dosage: 1 TABLET
     Route: 048
     Dates: start: 20071114
  12. MAGNESIUM CITRATE [Concomitant]
     Route: 048
     Dates: start: 20071115
  13. FERROSANOL DUODENAL [Concomitant]
     Indication: NEPHROGENIC ANAEMIA
     Route: 048
     Dates: start: 20071114
  14. FERROSANOL DUODENAL [Concomitant]
     Route: 048
     Dates: start: 20071207
  15. NEORECORMON [Concomitant]
     Indication: ANAEMIA
     Route: 030
     Dates: start: 20071214
  16. NEORECORMON [Concomitant]
     Dosage: 2000 E
     Route: 065
     Dates: start: 20080109
  17. COLECALCIFEROL [Concomitant]
     Route: 048
     Dates: start: 20080312
  18. COLECALCIFEROL [Concomitant]
     Dosage: 1000 E
     Route: 048
     Dates: start: 20080718
  19. SODIUM BICARBONATE [Concomitant]
     Route: 048
     Dates: start: 20071122
  20. GABAPENTIN [Concomitant]
     Route: 048
     Dates: start: 20071120
  21. GABAPENTIN [Concomitant]
     Route: 048
     Dates: start: 20071116

REACTIONS (7)
  - Pyelonephritis [Recovered/Resolved]
  - Pyelonephritis [Recovered/Resolved]
  - Lymphadenectomy [Not Recovered/Not Resolved]
  - Kidney transplant rejection [Recovered/Resolved with Sequelae]
  - Post transplant lymphoproliferative disorder [Recovered/Resolved]
  - Infection [Not Recovered/Not Resolved]
  - Epstein-Barr virus infection [Unknown]
